FAERS Safety Report 15359076 (Version 1)
Quarter: 2018Q3

REPORT INFORMATION
  Report Type: Spontaneous
  Country: CA (occurrence: CA)
  Receive Date: 20180906
  Receipt Date: 20180906
  Transmission Date: 20181010
  Serious: Yes (Other)
  Sender: FDA-Public Use
  Company Number: CA-ROCHE-2181087

PATIENT
  Age: 59 Year
  Sex: Female

DRUGS (20)
  1. PREGABALIN. [Suspect]
     Active Substance: PREGABALIN
     Indication: PRODUCT USED FOR UNKNOWN INDICATION
     Route: 065
  2. CLONAZEPAM. [Suspect]
     Active Substance: CLONAZEPAM
     Route: 065
  3. DULOXETINE. [Concomitant]
     Active Substance: DULOXETINE
     Route: 065
  4. QUETIAPINE. [Concomitant]
     Active Substance: QUETIAPINE
     Route: 065
  5. DIAZEPAM. [Concomitant]
     Active Substance: DIAZEPAM
     Route: 065
  6. CLONAZEPAM. [Suspect]
     Active Substance: CLONAZEPAM
     Indication: PRODUCT USED FOR UNKNOWN INDICATION
     Route: 065
  7. CLONAZEPAM. [Suspect]
     Active Substance: CLONAZEPAM
     Route: 065
  8. CLONAZEPAM. [Suspect]
     Active Substance: CLONAZEPAM
     Route: 065
  9. PREGABALIN. [Suspect]
     Active Substance: PREGABALIN
     Route: 065
  10. PROPRANOLOL [Concomitant]
     Active Substance: PROPRANOLOL HYDROCHLORIDE
     Route: 065
  11. TRAZODONE [Concomitant]
     Active Substance: TRAZODONE HYDROCHLORIDE
     Indication: INSOMNIA
     Route: 065
  12. BUPROPION. [Concomitant]
     Active Substance: BUPROPION
     Route: 065
  13. LURASIDONE HYDROCHLORIDE [Concomitant]
     Active Substance: LURASIDONE HYDROCHLORIDE
     Route: 065
  14. FLURAZEPAM [Suspect]
     Active Substance: FLURAZEPAM\FLURAZEPAM HYDROCHLORIDE
     Route: 065
  15. PREGABALIN. [Suspect]
     Active Substance: PREGABALIN
     Route: 065
  16. DIAZEPAM. [Concomitant]
     Active Substance: DIAZEPAM
     Route: 065
  17. FLURAZEPAM [Suspect]
     Active Substance: FLURAZEPAM\FLURAZEPAM HYDROCHLORIDE
     Indication: PRODUCT USED FOR UNKNOWN INDICATION
     Dosage: EVERY 1 DAY(S)
     Route: 065
  18. ASENAPINE MALEATE [Concomitant]
     Active Substance: ASENAPINE MALEATE
     Route: 065
  19. DESVENLAFAXINE. [Concomitant]
     Active Substance: DESVENLAFAXINE
     Route: 065
  20. GRAVOL [Concomitant]
     Active Substance: DIMENHYDRINATE
     Route: 065

REACTIONS (1)
  - Change in seizure presentation [Unknown]
